FAERS Safety Report 4692860-4 (Version None)
Quarter: 2005Q2

REPORT INFORMATION
  Report Type: 
  Country: None (occurrence: None)
  Receive Date: 20050617
  Receipt Date: 20050420
  Transmission Date: 20051028
  Serious: Yes (Other)
  Sender: FDA-Public Use
  Company Number: PHNU2005DE01774

PATIENT
  Sex: Male

DRUGS (4)
  1. OPIPRAMOL HYDROCHLORIDE [Concomitant]
     Dosage: 0.25 DF, QD
     Route: 048
  2. BRISERIN-N MITE [Suspect]
     Indication: HYPERTENSION
     Dosage: 0.5 DF, BID
     Route: 048
     Dates: start: 20050601
  3. BRISERIN-N MITE [Suspect]
     Dosage: 0.25 MG, BID
     Route: 048
     Dates: start: 20050401, end: 20050601
  4. BRISERIN-N MITE [Suspect]
     Dosage: 0.75 - 0 - 0.5 DF/DAY
     Route: 048
     Dates: end: 20050401

REACTIONS (3)
  - BLOOD PRESSURE INADEQUATELY CONTROLLED [None]
  - CEREBROVASCULAR ACCIDENT [None]
  - SLEEP DISORDER [None]
